FAERS Safety Report 7354004-X (Version None)
Quarter: 2011Q1

REPORT INFORMATION
  Report Type: 
  Country: None (occurrence: None)
  Receive Date: 20110315
  Receipt Date: 20110304
  Transmission Date: 20110831
  Serious: Yes (Hospitalization, Other)
  Sender: FDA-Public Use
  Company Number: PHHO2011DE04180

PATIENT
  Sex: Male

DRUGS (2)
  1. ANTIBIOTICS [Suspect]
     Indication: SINUSITIS BACTERIAL
     Dosage: UNK
     Dates: start: 20110228
  2. FTY 720 [Suspect]
     Indication: MULTIPLE SCLEROSIS
     Dosage: 0.5 MG / DAY
     Route: 048
     Dates: start: 20101207, end: 20110303

REACTIONS (4)
  - DIARRHOEA [None]
  - VERTIGO [None]
  - ASTHENIA [None]
  - SINUSITIS BACTERIAL [None]
